FAERS Safety Report 20174685 (Version 1)
Quarter: 2021Q4

REPORT INFORMATION
  Report Type: Spontaneous
  Country: AT (occurrence: AT)
  Receive Date: 20211213
  Receipt Date: 20211213
  Transmission Date: 20220303
  Serious: Yes (Other)
  Sender: FDA-Public Use
  Company Number: AT-MLMSERVICE-20211123-3214145-2

PATIENT
  Age: 52 Year
  Sex: Male

DRUGS (1)
  1. METHOTREXATE [Suspect]
     Active Substance: METHOTREXATE
     Indication: Psoriasis
     Route: 058

REACTIONS (4)
  - Epidermal necrosis [Recovering/Resolving]
  - Erythema annulare [Recovering/Resolving]
  - Injection site reaction [Recovering/Resolving]
  - Lichenoid keratosis [Recovering/Resolving]
